FAERS Safety Report 8485852-0 (Version None)
Quarter: 2012Q3

REPORT INFORMATION
  Report Type: 
  Country: None (occurrence: None)
  Receive Date: 20120703
  Receipt Date: 20120627
  Transmission Date: 20120928
  Serious: Yes (Other)
  Sender: FDA-Public Use
  Company Number: PHHY2012TW055619

PATIENT
  Sex: Male

DRUGS (3)
  1. METHAMPHETAMINE HYDROCHLORIDE [Suspect]
     Route: 064
  2. METHADONE HCL [Suspect]
     Route: 064
  3. HEROIN [Suspect]
     Route: 064

REACTIONS (15)
  - DRUG WITHDRAWAL SYNDROME NEONATAL [None]
  - PREMATURE BABY [None]
  - TACHYPNOEA [None]
  - IRRITABILITY [None]
  - POOR SUCKING REFLEX [None]
  - CRYING [None]
  - FEEDING DISORDER NEONATAL [None]
  - MECONIUM ABNORMAL [None]
  - LOW BIRTH WEIGHT BABY [None]
  - TREMOR [None]
  - CYANOSIS [None]
  - NEONATAL ASPIRATION [None]
  - FOETAL GROWTH RESTRICTION [None]
  - DEVELOPMENTAL DELAY [None]
  - FOETAL EXPOSURE DURING PREGNANCY [None]
